FAERS Safety Report 24061053 (Version 4)
Quarter: 2024Q3

REPORT INFORMATION
  Report Type: Spontaneous
  Country: US (occurrence: US)
  Receive Date: 20240708
  Receipt Date: 20240806
  Transmission Date: 20241017
  Serious: Yes (Other)
  Sender: PFIZER
  Company Number: US-PFIZER INC-202400207216

PATIENT
  Age: 91 Year
  Sex: Female
  Weight: 54.422 kg

DRUGS (9)
  1. PAXLOVID [Suspect]
     Active Substance: NIRMATRELVIR\RITONAVIR
     Indication: COVID-19 treatment
     Dosage: [NIRMATRELVIR 300 MG]/[RITONAVIR 100 MG]; 2X/DAY
     Route: 048
     Dates: start: 20240702, end: 20240704
  2. XARELTO [Concomitant]
     Active Substance: RIVAROXABAN
     Indication: Chronic obstructive pulmonary disease
     Dosage: 1 DF, DAILY
  3. LIOTHYRONINE [Concomitant]
     Active Substance: LIOTHYRONINE
     Indication: Thyroid disorder
     Dosage: 4 DF, DAILY
  4. METOPROLOL SUCCINATE [Concomitant]
     Active Substance: METOPROLOL SUCCINATE
     Indication: Blood pressure abnormal
     Dosage: 1 DF, DAILY
  5. NITROFURANTOIN [Concomitant]
     Active Substance: NITROFURANTOIN
     Indication: Blood pressure abnormal
     Dosage: 1 DF, DAILY
  6. LEVOTHYROXINE [Concomitant]
     Active Substance: LEVOTHYROXINE\LEVOTHYROXINE SODIUM
     Indication: Thyroid disorder
     Dosage: 1 DF, DAILY
  7. NIFEDIPINE [Concomitant]
     Active Substance: NIFEDIPINE
     Indication: Infection prophylaxis
     Dosage: 1 DF, DAILY
  8. VITAMIN D3 [Concomitant]
     Active Substance: CHOLECALCIFEROL
     Dosage: 1 DF, DAILY
  9. ASPIRIN [Concomitant]
     Active Substance: ASPIRIN
     Indication: Anticoagulant therapy
     Dosage: 1 DF, DAILY

REACTIONS (4)
  - Hallucination [Recovered/Resolved]
  - Insomnia [Recovered/Resolved]
  - Confusional state [Recovered/Resolved]
  - Food refusal [Recovered/Resolved]

NARRATIVE: CASE EVENT DATE: 20240703
